FAERS Safety Report 24968437 (Version 1)
Quarter: 2025Q1

REPORT INFORMATION
  Report Type: Other
  Country: IR (occurrence: IR)
  Receive Date: 20250214
  Receipt Date: 20250214
  Transmission Date: 20250409
  Serious: Yes (Hospitalization, Other)
  Sender: ANI
  Company Number: IR-ANIPHARMA-015551

PATIENT
  Age: 47 Year
  Sex: Male

DRUGS (9)
  1. INDOMETHACIN [Suspect]
     Active Substance: INDOMETHACIN
     Indication: Arthritis
  2. CLOPIDOGREL BISULFATE [Suspect]
     Active Substance: CLOPIDOGREL BISULFATE
     Indication: Antiplatelet therapy
  3. ASPIRIN [Concomitant]
     Active Substance: ASPIRIN
     Indication: Myocardial ischaemia
  4. ATORVASTATIN [Concomitant]
     Active Substance: ATORVASTATIN
     Indication: Myocardial ischaemia
  5. METOPROLOL SUCCINATE [Concomitant]
     Active Substance: METOPROLOL SUCCINATE
     Indication: Myocardial ischaemia
  6. AMLODIPINE\VALSARTAN [Concomitant]
     Active Substance: AMLODIPINE\VALSARTAN
     Indication: Hypertension
  7. NAPROXEN [Concomitant]
     Active Substance: NAPROXEN
     Indication: Arthritis
  8. TICAGRELOR [Concomitant]
     Active Substance: TICAGRELOR
     Indication: Antiplatelet therapy
  9. CLOPIDOGREL BISULFATE [Suspect]
     Active Substance: CLOPIDOGREL BISULFATE
     Indication: Antiplatelet therapy

REACTIONS (2)
  - Polyarthritis [Recovering/Resolving]
  - Drug ineffective [Unknown]
